FAERS Safety Report 25350204 (Version 1)
Quarter: 2025Q2

REPORT INFORMATION
  Report Type: Spontaneous
  Country: JP (occurrence: JP)
  Receive Date: 20250523
  Receipt Date: 20250523
  Transmission Date: 20250717
  Serious: Yes (Death, Other)
  Sender: UCB
  Company Number: JP-UCBJ-CD202506577UCBPHAPROD

PATIENT

DRUGS (1)
  1. ZILBRYSQ [Suspect]
     Active Substance: ZILUCOPLAN
     Indication: Product used for unknown indication
     Route: 058
     Dates: start: 20240729, end: 20250512

REACTIONS (1)
  - Death [Fatal]

NARRATIVE: CASE EVENT DATE: 20250512
